FAERS Safety Report 12811338 (Version 3)
Quarter: 2016Q4

REPORT INFORMATION
  Report Type: Spontaneous
  Country: RU (occurrence: RU)
  Receive Date: 20161005
  Receipt Date: 20161123
  Transmission Date: 20170207
  Serious: Yes (Hospitalization)
  Sender: FDA-Public Use
  Company Number: RU-ASTRAZENECA-2016SF04519

PATIENT
  Age: 56 Year
  Sex: Female

DRUGS (6)
  1. SYMBICORT [Suspect]
     Active Substance: BUDESONIDE\FORMOTEROL FUMARATE DIHYDRATE
     Indication: ASTHMA
     Dosage: 160/4.5 MICROGRAMS, TWO TIMES A DAY, ANOTHER BATCH
     Route: 055
     Dates: start: 201609
  2. BERODUAL [Concomitant]
     Active Substance: FENOTEROL HYDROBROMIDE\IPRATROPIUM BROMIDE
     Dosage: 1 INHALATION OF BETWEEN TBH USAGE
  3. SYMBICORT [Suspect]
     Active Substance: BUDESONIDE\FORMOTEROL FUMARATE DIHYDRATE
     Indication: ASTHMA
     Dosage: 160/4.5  MICROGRAMS, TWO TIMES A DAY, NEW BATCH, ONLY ONE TIME (2 INHALATION IN THE MORNING)
     Route: 055
     Dates: start: 20160926
  4. EUTHYROX [Concomitant]
     Active Substance: LEVOTHYROXINE SODIUM
     Indication: THYROIDECTOMY
  5. SYMBICORT [Suspect]
     Active Substance: BUDESONIDE\FORMOTEROL FUMARATE DIHYDRATE
     Indication: ASTHMA
     Dosage: 160/4.5  MICROGRAMS, 2 DOSES TWO TIMES A DAY
     Route: 055
     Dates: start: 2011
  6. SYMBICORT [Suspect]
     Active Substance: BUDESONIDE\FORMOTEROL FUMARATE DIHYDRATE
     Indication: ASTHMA
     Dosage: 80/4.5 MICROGRAMS, TWO TIMES A DAY
     Route: 055

REACTIONS (14)
  - Oropharyngeal pain [Recovered/Resolved]
  - Tremor [Unknown]
  - Headache [Unknown]
  - Pulmonary pain [Recovered/Resolved]
  - Insomnia [Unknown]
  - Product quality issue [Unknown]
  - Blood pressure fluctuation [Unknown]
  - Nausea [Unknown]
  - Dysphonia [Recovered/Resolved]
  - Blood glucose increased [Unknown]
  - Tremor [Unknown]
  - Asthma [Not Recovered/Not Resolved]
  - Hyperglycaemia [Unknown]
  - Product use issue [Unknown]

NARRATIVE: CASE EVENT DATE: 20160925
